FAERS Safety Report 15396497 (Version 2)
Quarter: 2018Q3

REPORT INFORMATION
  Report Type: Report from Study
  Country: DE (occurrence: DE)
  Receive Date: 20180918
  Receipt Date: 20180926
  Transmission Date: 20181010
  Serious: Yes (Hospitalization, Other)
  Sender: FDA-Public Use
  Company Number: PHHY2018DE095873

PATIENT
  Age: 51 Year
  Sex: Female
  Weight: 67 kg

DRUGS (11)
  1. XARELTO [Concomitant]
     Active Substance: RIVAROXABAN
     Indication: PRODUCT USED FOR UNKNOWN INDICATION
     Dosage: 1 DF, QD (1 IN THE MORNING )
     Route: 065
  2. BISOPROLOL [Concomitant]
     Active Substance: BISOPROLOL
     Indication: PRODUCT USED FOR UNKNOWN INDICATION
     Dosage: 0.5 DF, QD (A HALF IN THE MORNING)
     Route: 065
  3. CLOPIDOGREL ZENTIVA [Concomitant]
     Active Substance: CLOPIDOGREL BISULFATE
     Indication: PRODUCT USED FOR UNKNOWN INDICATION
     Dosage: 1 DF, QD (1 IN THE MORNING EVERY 2 DAYS)
     Route: 065
  4. ENTRESTO [Suspect]
     Active Substance: SACUBITRIL\VALSARTAN
     Indication: CARDIAC FAILURE
     Dosage: 0.5 DF (24 MG SACUBITRIL,26 MG VALSARTAN), BID
     Route: 065
     Dates: start: 20170306
  5. NOVALGIN [Concomitant]
     Indication: PRODUCT USED FOR UNKNOWN INDICATION
     Dosage: 40 MG, TID
     Route: 065
  6. SPIRONOLACTONE. [Concomitant]
     Active Substance: SPIRONOLACTONE
     Indication: PRODUCT USED FOR UNKNOWN INDICATION
     Dosage: 1 DF, QD (1 IN THE MORNING)
     Route: 065
  7. ENTRESTO [Suspect]
     Active Substance: SACUBITRIL\VALSARTAN
     Dosage: UNK
     Route: 065
     Dates: start: 20170816, end: 20180712
  8. LOVABETA [Concomitant]
     Indication: PRODUCT USED FOR UNKNOWN INDICATION
     Dosage: 1 DF, QD (1 IN THE EVENING)
     Route: 065
  9. PANTOPRAZOLE [Concomitant]
     Active Substance: PANTOPRAZOLE
     Indication: PRODUCT USED FOR UNKNOWN INDICATION
     Dosage: 20 MG, BID (1 IN EACH MORNING AND EVENING)
     Route: 065
  10. CLOPIDOGREL ZENTIVA [Concomitant]
     Active Substance: CLOPIDOGREL BISULFATE
     Dosage: 1 DF, QD (1 IN THE MORNING)
     Route: 065
  11. TOPIRAMATE. [Concomitant]
     Active Substance: TOPIRAMATE
     Indication: PRODUCT USED FOR UNKNOWN INDICATION
     Dosage: 0.5 DF, QD (A HALF IN THE MORNING)
     Route: 065

REACTIONS (17)
  - Chronic kidney disease [Unknown]
  - High density lipoprotein decreased [Unknown]
  - Urinary tract infection staphylococcal [Unknown]
  - Blood cholesterol increased [Unknown]
  - Mitral valve incompetence [Unknown]
  - Ejection fraction decreased [Unknown]
  - Musculoskeletal pain [Unknown]
  - Urinary tract infection bacterial [Unknown]
  - Calculus bladder [Unknown]
  - Blood glucose increased [Unknown]
  - Pleural effusion [Unknown]
  - Chest pain [Unknown]
  - Gastritis erosive [Unknown]
  - Aortic aneurysm [Unknown]
  - Atrial fibrillation [Unknown]
  - Rectal ulcer [Unknown]
  - Duodenitis [Unknown]

NARRATIVE: CASE EVENT DATE: 20180302
